FAERS Safety Report 8950476 (Version 2)
Quarter: 2013Q1

REPORT INFORMATION
  Report Type: Spontaneous
  Country: DE (occurrence: None)
  Receive Date: 20121128
  Receipt Date: 20121203
  Transmission Date: 20140127
  Serious: Yes (Hospitalization)
  Sender: FDA-Public Use
  Company Number: 219551

PATIENT
  Age: 58 Year
  Sex: Male
  Weight: 100 kg

DRUGS (3)
  1. INNOHEP [Suspect]
     Indication: THROMBOSIS PROPHYLAXIS
     Dosage: 1 IN 1 D
     Route: 058
     Dates: start: 20120920, end: 20121010
  2. METFORMIN (METFORMIN) (850) [Concomitant]
  3. ANTIHYPERTENSIVE (ANTIHYPERTENSIVES) (5) [Concomitant]

REACTIONS (4)
  - Embolism arterial [None]
  - Incorrect drug administration duration [None]
  - Incorrect dose administered [None]
  - Off label use [None]
